FAERS Safety Report 6117625-8 (Version None)
Quarter: 2009Q1

REPORT INFORMATION
  Report Type: 
  Country: None (occurrence: None)
  Receive Date: 20090314
  Receipt Date: 20090224
  Transmission Date: 20090719
  Serious: Yes (Hospitalization)
  Sender: FDA-Public Use
  Company Number: US-ABBOTT-09P-163-0499766-00

PATIENT
  Sex: Female

DRUGS (2)
  1. HUMIRA [Suspect]
     Indication: DRUG USE FOR UNKNOWN INDICATION
     Route: 058
     Dates: end: 20081101
  2. UNNAMED CREAM [Concomitant]
     Indication: DRUG USE FOR UNKNOWN INDICATION
     Route: 061

REACTIONS (7)
  - ABASIA [None]
  - ABDOMINAL DISTENSION [None]
  - INFECTION [None]
  - INFUSION SITE INFECTION [None]
  - LOCAL SWELLING [None]
  - OEDEMA PERIPHERAL [None]
  - PSORIASIS [None]
